FAERS Safety Report 9341141 (Version 1)
Quarter: 2013Q2

REPORT INFORMATION
  Report Type: Spontaneous
  Country: US (occurrence: US)
  Receive Date: 20130611
  Receipt Date: 20130611
  Transmission Date: 20140414
  Serious: No
  Sender: FDA-Public Use
  Company Number: US-B.I. PHARMACEUTICALS,INC./RIDGEFIELD-2013-BI-15947BP

PATIENT
  Age: 68 Year
  Sex: Male

DRUGS (7)
  1. PRADAXA [Suspect]
     Indication: CEREBROVASCULAR ACCIDENT PROPHYLAXIS
     Dosage: 300 MG
     Route: 048
     Dates: start: 2010
  2. PRADAXA [Suspect]
     Indication: ATRIAL FIBRILLATION
  3. AVAPRO [Concomitant]
     Indication: HYPERTENSION
  4. RYTHMOL [Concomitant]
     Indication: ATRIAL FIBRILLATION
  5. LIPITOR [Concomitant]
     Indication: BLOOD CHOLESTEROL INCREASED
  6. SYNTHROID [Concomitant]
     Indication: HYPOTHYROIDISM
  7. TOPROL [Concomitant]
     Indication: ATRIAL FIBRILLATION

REACTIONS (1)
  - Back pain [Not Recovered/Not Resolved]
